FAERS Safety Report 7211415-0 (Version None)
Quarter: 2011Q1

REPORT INFORMATION
  Report Type: 
  Country: None (occurrence: None)
  Receive Date: 20110105
  Receipt Date: 20110104
  Transmission Date: 20110831
  Serious: Yes (Hospitalization)
  Sender: FDA-Public Use
  Company Number: US-EISAI INC.-E2020-08293-SPO-US

PATIENT
  Age: 78 Year
  Sex: Female

DRUGS (3)
  1. ARICEPT [Suspect]
     Route: 048
     Dates: start: 20080101, end: 20100901
  2. ARICEPT [Suspect]
     Route: 048
     Dates: start: 20101201
  3. ARICEPT [Suspect]
     Route: 048
     Dates: start: 20100901, end: 20101201

REACTIONS (3)
  - BACK PAIN [None]
  - ARTHRALGIA [None]
  - THROMBOSIS [None]
